FAERS Safety Report 13175736 (Version 2)
Quarter: 2017Q2

REPORT INFORMATION
  Report Type: Spontaneous
  Country: IR (occurrence: IR)
  Receive Date: 20170201
  Receipt Date: 20170427
  Transmission Date: 20170830
  Serious: Yes (Other)
  Sender: FDA-Public Use
  Company Number: IR-BAYER-2017-018039

PATIENT
  Sex: Female

DRUGS (1)
  1. BETAFERON [Suspect]
     Active Substance: INTERFERON BETA-1B
     Dosage: 250 ?G, EVERY OTHER DAY FOR ABOUT 10 YEARS
     Route: 058
     Dates: start: 2007

REACTIONS (3)
  - Hypothyroidism [None]
  - Multiple sclerosis [None]
  - Osteonecrosis [None]

NARRATIVE: CASE EVENT DATE: 2013
